FAERS Safety Report 4533294-2 (Version None)
Quarter: 2004Q4

REPORT INFORMATION
  Report Type: 
  Country: None (occurrence: None)
  Receive Date: 20041221
  Receipt Date: 20041213
  Transmission Date: 20050328
  Serious: Yes (Hospitalization)
  Sender: FDA-Public Use
  Company Number: PHRM2004FR03657

PATIENT
  Age: 82 Year
  Sex: Female

DRUGS (10)
  1. MELLARIL [Suspect]
     Dosage: 7 DF, QD
     Route: 048
     Dates: start: 20040902, end: 20040916
  2. AUGMENTIN '125' [Suspect]
     Dosage: 2 G, QD
     Route: 048
     Dates: start: 20040902, end: 20040913
  3. DIAMICRON [Concomitant]
     Indication: DIABETES MELLITUS
     Dosage: 30 MG, QD
     Route: 048
     Dates: end: 20040916
  4. KARDEGIC                                /FRA/ [Concomitant]
     Dosage: 160 MG, QD
     Route: 048
     Dates: end: 20040916
  5. PROZAC [Concomitant]
     Dosage: UNK, UNK
     Route: 048
     Dates: end: 20040916
  6. OROCAL VITAMIN D [Concomitant]
     Dosage: UNK, UNK
     Route: 048
     Dates: end: 20040916
  7. OXYGEN THERAPY [Concomitant]
     Indication: DYSPNOEA
  8. PHYSIOTHERAPY [Concomitant]
  9. BETA RECEPTOR STIMULANTS [Concomitant]
     Indication: DYSPNOEA
  10. IMOVANE [Concomitant]

REACTIONS (8)
  - ASCITES [None]
  - BLOOD FOLATE DECREASED [None]
  - CARDIAC FAILURE [None]
  - COOMBS DIRECT TEST POSITIVE [None]
  - HAEMOGLOBIN DECREASED [None]
  - HAEMOLYTIC ANAEMIA [None]
  - JAUNDICE [None]
  - PITTING OEDEMA [None]
